FAERS Safety Report 4786736-1 (Version None)
Quarter: 2005Q3

REPORT INFORMATION
  Report Type: 
  Country: None (occurrence: None)
  Receive Date: 20050930
  Receipt Date: 20050914
  Transmission Date: 20060218
  Serious: Yes (Other)
  Sender: FDA-Public Use
  Company Number: 04-000914

PATIENT
  Age: 50 Year
  Sex: Female
  Weight: 93.4 kg

DRUGS (6)
  1. OVCON-35 [Suspect]
     Indication: METRORRHAGIA
     Dosage: 35/400 UG Q8H X 1 WEEK, ORAL
     Route: 048
     Dates: start: 20010731, end: 20010806
  2. PREMPRO [Suspect]
     Indication: HORMONE REPLACEMENT THERAPY
     Dosage: 2.5 MG, ORAL
     Route: 048
     Dates: start: 20010705, end: 20010731
  3. PREMPRO [Suspect]
     Indication: HORMONE REPLACEMENT THERAPY
     Dosage: 2.5 MG, ORAL
     Route: 048
     Dates: start: 20010808, end: 20010813
  4. PREMARIN [Suspect]
     Indication: HORMONE REPLACEMENT THERAPY
     Dosage: 0.625 MG, VAGINAL
     Route: 067
     Dates: start: 20010705, end: 20010721
  5. ESTRACE [Suspect]
     Indication: HORMONE REPLACEMENT THERAPY
     Dosage: ORAL
     Route: 048
  6. ESTRACE [Suspect]
     Indication: HORMONE REPLACEMENT THERAPY
     Dosage: VAGINAL
     Route: 067

REACTIONS (5)
  - BRONCHIAL CARCINOMA [None]
  - DEEP VEIN THROMBOSIS [None]
  - ILIAC VEIN THROMBOSIS [None]
  - PULMONARY EMBOLISM [None]
  - VAGINAL HAEMORRHAGE [None]
